FAERS Safety Report 23023100 (Version 3)
Quarter: 2023Q4

REPORT INFORMATION
  Report Type: Spontaneous
  Country: MX (occurrence: MX)
  Receive Date: 20231003
  Receipt Date: 20231122
  Transmission Date: 20240110
  Serious: Yes (Other)
  Sender: FDA-Public Use
  Company Number: MX-002147023-NVSC2022MX285228

PATIENT
  Sex: Female
  Weight: 57.45 kg

DRUGS (3)
  1. ATORVASTATIN [Suspect]
     Active Substance: ATORVASTATIN
     Indication: Product used for unknown indication
     Dosage: 80 MG
     Route: 048
     Dates: start: 20221126, end: 20221126
  2. FERROUS FUMARATE [Suspect]
     Active Substance: FERROUS FUMARATE
     Indication: Anaemia
     Dosage: 200 MG, QD
     Route: 048
     Dates: start: 202304, end: 202307
  3. FOLIC ACID [Suspect]
     Active Substance: FOLIC ACID
     Indication: Preventive surgery
     Dosage: 5 MG, QD
     Route: 048
     Dates: start: 202302, end: 202307

REACTIONS (2)
  - Pregnancy with contraceptive device [Unknown]
  - Exposure during pregnancy [Unknown]
